FAERS Safety Report 9179776 (Version 1)
Quarter: 2012Q4

REPORT INFORMATION
  Report Type: 
  Country: US (occurrence: US)
  Receive Date: 20121029
  Receipt Date: 20121029
  Transmission Date: 20130627
  Serious: No
  Sender: FDA-Public Use
  Company Number: US-B.I. PHARMACEUTICALS,INC./RIDGEFIELD-2012-BP-26361BP

PATIENT
  Age: 64 None
  Sex: Male
  Weight: 91 kg

DRUGS (2)
  1. MICARDIS [Suspect]
     Indication: HYPERTENSION
     Dosage: 40 mg
     Route: 048
     Dates: start: 1992
  2. SERTRALINE [Concomitant]
     Indication: PANIC DISORDER
     Dosage: 100 mg
     Route: 048

REACTIONS (3)
  - Dizziness [Recovered/Resolved]
  - Altered state of consciousness [Recovered/Resolved]
  - Wheezing [Not Recovered/Not Resolved]
